FAERS Safety Report 7483547-3 (Version None)
Quarter: 2011Q2

REPORT INFORMATION
  Report Type: 
  Country: None (occurrence: None)
  Receive Date: 20110517
  Receipt Date: 20110510
  Transmission Date: 20111010
  Serious: Yes (Hospitalization, Other)
  Sender: FDA-Public Use
  Company Number: US-AMGEN-USASP2011024282

PATIENT
  Sex: Female

DRUGS (2)
  1. XGEVA [Suspect]
     Indication: METASTASES TO BONE
     Dosage: UNK
     Dates: start: 20110328
  2. ANTINEOPLASTIC AGENTS [Concomitant]

REACTIONS (2)
  - HYPOCALCAEMIA [None]
  - HOSPITALISATION [None]
